FAERS Safety Report 5329463-4 (Version None)
Quarter: 2007Q2

REPORT INFORMATION
  Report Type: 
  Country: None (occurrence: None)
  Receive Date: 20070221
  Receipt Date: 20060926
  Transmission Date: 20071010
  Serious: Yes (Other)
  Sender: FDA-Public Use
  Company Number: BDI-008642

PATIENT
  Sex: Female

DRUGS (3)
  1. ISOVUE-300 [Suspect]
     Indication: ABDOMINAL PAIN
     Dosage: 150 ML ONCE IV
     Route: 042
     Dates: start: 20060918, end: 20060918
  2. ISOVUE-300 [Suspect]
     Indication: COMPUTERISED TOMOGRAM
     Dosage: 150 ML ONCE IV
     Route: 042
     Dates: start: 20060918, end: 20060918
  3. ISOVUE-300 [Suspect]
     Indication: ULTRASOUND DOPPLER ABNORMAL
     Dosage: 150 ML ONCE IV
     Route: 042
     Dates: start: 20060918, end: 20060918

REACTIONS (2)
  - CHEST DISCOMFORT [None]
  - DYSPNOEA [None]
